FAERS Safety Report 9902615 (Version 2)
Quarter: 2014Q1

REPORT INFORMATION
  Report Type: Spontaneous
  Country: JP (occurrence: JP)
  Receive Date: 20140217
  Receipt Date: 20140217
  Transmission Date: 20141002
  Serious: Yes (Hospitalization)
  Sender: FDA-Public Use
  Company Number: JP-PFIZER INC-2014025123

PATIENT
  Age: 71 Year
  Sex: Male

DRUGS (3)
  1. HALCION [Suspect]
     Indication: INSOMNIA
     Dosage: UNK
     Route: 048
  2. VFEND [Interacting]
     Indication: FUNGAL INFECTION
     Dosage: 600 MG, DAILY
     Route: 048
     Dates: start: 20140116, end: 20140116
  3. VFEND [Interacting]
     Dosage: 300 MG, DAILY
     Route: 048
     Dates: start: 20140117, end: 20140124

REACTIONS (5)
  - Drug level increased [Unknown]
  - Drug interaction [Unknown]
  - Dysarthria [Recovered/Resolved]
  - Somnolence [Recovered/Resolved]
  - Dysstasia [Recovered/Resolved]
